FAERS Safety Report 10528852 (Version 2)
Quarter: 2014Q4

REPORT INFORMATION
  Report Type: Spontaneous
  Country: US (occurrence: US)
  Receive Date: 20141020
  Receipt Date: 20141126
  Transmission Date: 20150528
  Serious: Yes (Hospitalization, Other)
  Sender: FDA-Public Use
  Company Number: US-PFIZER INC-2014283654

PATIENT
  Age: 70 Year
  Sex: Female

DRUGS (4)
  1. ASPIRIN. [Suspect]
     Active Substance: ASPIRIN
     Dosage: UNK
  2. CENTRUM SILVER [Concomitant]
     Active Substance: VITAMINS
     Dosage: UNK
  3. ADVIL [Suspect]
     Active Substance: IBUPROFEN
     Indication: ARTHRALGIA
     Dosage: 200 MG, AS NEEDED
     Dates: end: 2014
  4. TYLENOL [Suspect]
     Active Substance: ACETAMINOPHEN
     Indication: PYREXIA
     Dosage: UNK

REACTIONS (8)
  - Back disorder [Unknown]
  - Drug ineffective [Unknown]
  - Weight decreased [Unknown]
  - Poor quality drug administered [Unknown]
  - Suspected counterfeit product [Unknown]
  - Open fracture [Unknown]
  - Product size issue [Unknown]
  - Body height decreased [Unknown]
